FAERS Safety Report 5673617-4 (Version None)
Quarter: 2008Q1

REPORT INFORMATION
  Report Type: 
  Country: None (occurrence: None)
  Receive Date: 20080319
  Receipt Date: 20080307
  Transmission Date: 20080703
  Serious: Yes (Life-Threatening, Hospitalization, Other)
  Sender: FDA-Public Use
  Company Number: IN-PFIZER INC-2008022259

PATIENT
  Age: 74 Year
  Sex: Male

DRUGS (6)
  1. LYRICA [Suspect]
     Indication: NEURALGIA
     Route: 048
  2. LYRICA [Suspect]
     Indication: SPINAL DISORDER
  3. MINIPRESS XL [Concomitant]
     Route: 048
  4. ENALAPRIL MALEATE [Concomitant]
     Route: 048
  5. METOPROLOL TARTRATE [Concomitant]
     Route: 048
  6. LASIX [Concomitant]
     Route: 048

REACTIONS (6)
  - ABNORMAL BEHAVIOUR [None]
  - INSOMNIA [None]
  - ORTHOSTATIC HYPOTENSION [None]
  - RESTLESSNESS [None]
  - TUBERCULOSIS OF CENTRAL NERVOUS SYSTEM [None]
  - WITHDRAWAL SYNDROME [None]
